FAERS Safety Report 11904148 (Version 1)
Quarter: 2016Q1

REPORT INFORMATION
  Report Type: Spontaneous
  Country: FR (occurrence: FR)
  Receive Date: 20160111
  Receipt Date: 20160111
  Transmission Date: 20160526
  Serious: Yes (Hospitalization)
  Sender: FDA-Public Use
  Company Number: FR-ROCHE-1690213

PATIENT
  Age: 75 Year
  Sex: Female

DRUGS (3)
  1. ROCEPHINE [Suspect]
     Active Substance: CEFTRIAXONE SODIUM
     Indication: ABSCESS LIMB
     Route: 048
     Dates: start: 20150924
  2. DALACINE [Concomitant]
     Active Substance: CLINDAMYCIN HYDROCHLORIDE
  3. BACTRIM [Suspect]
     Active Substance: SULFAMETHOXAZOLE\TRIMETHOPRIM
     Indication: ABSCESS LIMB
     Route: 048
     Dates: start: 20150924

REACTIONS (3)
  - Eosinophil count increased [Recovered/Resolved]
  - Pyrexia [Recovered/Resolved]
  - Erythema [Recovered/Resolved]

NARRATIVE: CASE EVENT DATE: 20151006
